FAERS Safety Report 20736330 (Version 2)
Quarter: 2022Q2

REPORT INFORMATION
  Report Type: Spontaneous
  Country: HU (occurrence: HU)
  Receive Date: 20220421
  Receipt Date: 20220514
  Transmission Date: 20220720
  Serious: No
  Sender: FDA-Public Use
  Company Number: HU-LUPIN PHARMACEUTICALS INC.-2022-05874

PATIENT
  Sex: Female

DRUGS (7)
  1. AZITHROMYCIN [Suspect]
     Active Substance: AZITHROMYCIN
     Indication: COVID-19
     Dosage: UNK
     Route: 065
     Dates: start: 2021
  2. NATALIZUMAB [Concomitant]
     Active Substance: NATALIZUMAB
     Indication: Multiple sclerosis
     Dosage: UNK
     Route: 065
     Dates: start: 20150316
  3. NATALIZUMAB [Concomitant]
     Active Substance: NATALIZUMAB
     Dosage: UNK
     Route: 065
     Dates: start: 202004
  4. NATALIZUMAB [Concomitant]
     Active Substance: NATALIZUMAB
     Dosage: UNK
     Route: 065
  5. METHYLPREDNISOLONE [Concomitant]
     Active Substance: METHYLPREDNISOLONE
     Indication: Acute disseminated encephalomyelitis
     Dosage: 1 GRAM
     Route: 065
  6. METHYLPREDNISOLONE [Concomitant]
     Active Substance: METHYLPREDNISOLONE
     Dosage: 1 GRAM, QD
     Route: 065
     Dates: start: 201411
  7. AZATHIOPRINE [Concomitant]
     Active Substance: AZATHIOPRINE
     Indication: Acute disseminated encephalomyelitis
     Dosage: 200 MILLIGRAM, QD
     Route: 065

REACTIONS (1)
  - Off label use [Unknown]
